FAERS Safety Report 7463244-0 (Version None)
Quarter: 2011Q2

REPORT INFORMATION
  Report Type: 
  Country: None (occurrence: None)
  Receive Date: 20110506
  Receipt Date: 20110429
  Transmission Date: 20111010
  Serious: Yes (Other)
  Sender: FDA-Public Use
  Company Number: FR-ROCHE-774428

PATIENT
  Sex: Male

DRUGS (2)
  1. AVASTIN [Suspect]
     Indication: LUNG ADENOCARCINOMA
     Dosage: BY CYCLE, LAST DOSE ON 6 JAN 2011
     Route: 042
     Dates: start: 20100401
  2. ALIMTA [Suspect]
     Indication: LUNG ADENOCARCINOMA
     Dosage: FREQUENCY: BY CYCLE, LAST DOSE ON 6 JAN 2011
     Route: 042
     Dates: start: 20100401

REACTIONS (1)
  - PERIPHERAL ISCHAEMIA [None]
